FAERS Safety Report 5719002-8 (Version None)
Quarter: 2008Q2

REPORT INFORMATION
  Report Type: 
  Country: None (occurrence: None)
  Receive Date: 20080425
  Receipt Date: 20080418
  Transmission Date: 20081010
  Serious: Yes (Disabling, Other)
  Sender: FDA-Public Use
  Company Number: PHHY2008JP03861

PATIENT

DRUGS (4)
  1. ZOMETA [Suspect]
     Dosage: 4 MG/DAY
     Route: 042
     Dates: start: 20080214, end: 20080313
  2. IRESSA [Suspect]
     Route: 048
     Dates: start: 20080219
  3. MS CONTIN [Concomitant]
     Route: 048
     Dates: start: 20080222, end: 20080303
  4. DUROTEP JANSSEN [Concomitant]
     Route: 062
     Dates: start: 20080303

REACTIONS (3)
  - ALANINE AMINOTRANSFERASE INCREASED [None]
  - ASPARTATE AMINOTRANSFERASE INCREASED [None]
  - LIVER DISORDER [None]
